FAERS Safety Report 13331978 (Version 1)
Quarter: 2017Q1

REPORT INFORMATION
  Report Type: Spontaneous
  Country: US (occurrence: US)
  Receive Date: 20170314
  Receipt Date: 20170314
  Transmission Date: 20170428
  Serious: No
  Sender: FDA-Public Use
  Company Number: US-JNJFOC-20170215018

PATIENT
  Sex: Female
  Weight: 61.24 kg

DRUGS (2)
  1. CHLORTHALIDON [Concomitant]
     Indication: HYPERTENSION
     Route: 065
  2. TYLENOL REGULAR STRENGTH [Suspect]
     Active Substance: ACETAMINOPHEN
     Indication: PAIN
     Dosage: 2 TABLETS,2-3 TIMES PER DAY.
     Route: 048

REACTIONS (1)
  - Abdominal discomfort [Recovered/Resolved]
